FAERS Safety Report 6966395-X (Version None)
Quarter: 2010Q3

REPORT INFORMATION
  Report Type: 
  Country: None (occurrence: None)
  Receive Date: 20100904
  Receipt Date: 20100826
  Transmission Date: 20110219
  Serious: Yes (Hospitalization, Other)
  Sender: FDA-Public Use
  Company Number: PHHY2010US52216

PATIENT
  Sex: Female

DRUGS (1)
  1. LESCOL XL [Suspect]
     Route: 048

REACTIONS (4)
  - BEDRIDDEN [None]
  - DYSPNOEA [None]
  - EMPHYSEMA [None]
  - MALAISE [None]
